FAERS Safety Report 6110334-0 (Version None)
Quarter: 2009Q1

REPORT INFORMATION
  Report Type: 
  Country: None (occurrence: None)
  Receive Date: 20090310
  Receipt Date: 20090226
  Transmission Date: 20090719
  Serious: Yes (Hospitalization)
  Sender: FDA-Public Use
  Company Number: FR-PFIZER INC-2009177090

PATIENT

DRUGS (6)
  1. TRIFLUCAN [Suspect]
     Route: 048
     Dates: start: 20081125, end: 20081215
  2. RIFAMPICIN [Suspect]
     Route: 048
     Dates: start: 20081207, end: 20081219
  3. RIFABUTIN [Concomitant]
     Dates: start: 20081130, end: 20081206
  4. ISONIAZID [Concomitant]
     Dates: start: 20081201, end: 20081219
  5. PYRAZINAMIDE [Concomitant]
     Dates: start: 20081130, end: 20081215
  6. ETHAMBUTOL [Concomitant]
     Dates: start: 20081130, end: 20081219

REACTIONS (2)
  - BLOOD BILIRUBIN INCREASED [None]
  - JAUNDICE [None]
